FAERS Safety Report 24555222 (Version 1)
Quarter: 2024Q4

REPORT INFORMATION
  Report Type: Spontaneous
  Country: IE (occurrence: IE)
  Receive Date: 20241028
  Receipt Date: 20241028
  Transmission Date: 20250114
  Serious: Yes (Hospitalization, Other)
  Sender: RANBAXY
  Company Number: IE-SUN PHARMACEUTICAL INDUSTRIES LTD-2024R1-475613

PATIENT
  Age: 13 Year
  Sex: Male

DRUGS (1)
  1. LOPERAMIDE [Suspect]
     Active Substance: LOPERAMIDE
     Indication: Product used for unknown indication
     Dosage: UNK 12MG IN FORM OF 6 TABLETS OF 2MG
     Route: 048

REACTIONS (2)
  - Accidental exposure to product [Unknown]
  - Pancreatitis acute [Recovering/Resolving]
